FAERS Safety Report 24067179 (Version 1)
Quarter: 2024Q3

REPORT INFORMATION
  Report Type: Report from Study
  Country: TW (occurrence: TW)
  Receive Date: 20240709
  Receipt Date: 20240709
  Transmission Date: 20241017
  Serious: Yes (Hospitalization)
  Sender: ROCHE
  Company Number: TW-ROCHE-10000000083

PATIENT
  Age: 53 Year
  Sex: Female
  Weight: 51.5 kg

DRUGS (1)
  1. PERJETA [Suspect]
     Active Substance: PERTUZUMAB
     Indication: Breast cancer
     Route: 065
     Dates: start: 20230928, end: 20240530

REACTIONS (1)
  - Vascular device infection [Recovering/Resolving]

NARRATIVE: CASE EVENT DATE: 20240530
